FAERS Safety Report 5730759-2 (Version None)
Quarter: 2008Q2

REPORT INFORMATION
  Report Type: 
  Country: None (occurrence: None)
  Receive Date: 20080502
  Receipt Date: 20080204
  Transmission Date: 20081010
  Serious: Yes (Other)
  Sender: FDA-Public Use
  Company Number: 44926

PATIENT
  Age: 64 Year
  Sex: Female
  Weight: 58.0604 kg

DRUGS (1)
  1. CLINDAMYCIN PHOSPHATE [Suspect]
     Dates: start: 20071101, end: 20071130

REACTIONS (1)
  - DIARRHOEA [None]
